FAERS Safety Report 9907928 (Version 1)
Quarter: 2014Q1

REPORT INFORMATION
  Report Type: Spontaneous
  Country: US (occurrence: US)
  Receive Date: 20140219
  Receipt Date: 20140219
  Transmission Date: 20141002
  Serious: No
  Sender: FDA-Public Use
  Company Number: US-BIOGENIDEC-2014BI015695

PATIENT
  Age: 66 Year
  Sex: Male

DRUGS (14)
  1. TECFIDERA [Suspect]
     Indication: MULTIPLE SCLEROSIS
     Route: 048
     Dates: start: 20140130, end: 20140204
  2. TECFIDERA [Suspect]
     Indication: MULTIPLE SCLEROSIS
     Route: 048
     Dates: start: 20140205
  3. SIMVISTATIN [Concomitant]
  4. BETHANECHOL [Concomitant]
  5. SINEMET [Concomitant]
  6. HCTZ [Concomitant]
  7. FEXOFENADINE HCL [Concomitant]
  8. ZOLPIDEM [Concomitant]
  9. CYMBALTA [Concomitant]
  10. DESONIDE CREAM [Concomitant]
  11. LYRICA [Concomitant]
  12. LOSARTAN [Concomitant]
  13. HYDROCODONE [Concomitant]
  14. CIPROFLOXACIN [Concomitant]

REACTIONS (1)
  - Urticaria [Not Recovered/Not Resolved]
